FAERS Safety Report 21236722 (Version 2)
Quarter: 2022Q3

REPORT INFORMATION
  Report Type: Spontaneous
  Country: US (occurrence: US)
  Receive Date: 20220822
  Receipt Date: 20220823
  Transmission Date: 20221027
  Serious: Yes (Other)
  Sender: FDA-Public Use
  Company Number: US-MLMSERVICE-20220810-3731585-1

PATIENT
  Age: 63 Year
  Sex: Female

DRUGS (20)
  1. ATIVAN [Suspect]
     Active Substance: LORAZEPAM
     Indication: Anxiety
     Dosage: Q 6 HOURS AS NEEDED
     Route: 048
  2. DEXAMETHASONE [Suspect]
     Active Substance: DEXAMETHASONE
     Indication: Pain
     Route: 042
  3. CARBOPLATIN [Concomitant]
     Active Substance: CARBOPLATIN
     Indication: Breast cancer recurrent
     Dosage: 5 CYCLES
  4. GEMCITABINE [Concomitant]
     Active Substance: GEMCITABINE
     Indication: Breast cancer recurrent
     Dosage: 5 CYCLES
  5. METHADONE [Concomitant]
     Active Substance: METHADONE HYDROCHLORIDE
     Indication: Analgesic therapy
  6. METHADONE [Concomitant]
     Active Substance: METHADONE HYDROCHLORIDE
  7. GABAPENTIN [Concomitant]
     Active Substance: GABAPENTIN
     Indication: Analgesic therapy
  8. OXYCODONE [Concomitant]
     Active Substance: OXYCODONE
     Indication: Analgesic therapy
     Dosage: 10-20 MG EVERY 4 HOURS AS NEEDED (USING 5 TIMES DAILY ON AVERAGE)
  9. HYDROMORPHONE [Concomitant]
     Active Substance: HYDROMORPHONE
     Indication: Analgesic therapy
     Dosage: Q 4 HOURS PRN, RESCUE BOLUS  DOSE
     Route: 040
  10. HYDROMORPHONE [Concomitant]
     Active Substance: HYDROMORPHONE
     Indication: Pain
     Dosage: DEMAND DOSE, 10 MIN LOCKOUT
  11. HYDROMORPHONE [Concomitant]
     Active Substance: HYDROMORPHONE
     Dosage: Q 4 HOURS PRN, RESCUE DOSE
     Route: 042
  12. MORPHINE [Concomitant]
     Active Substance: MORPHINE
     Indication: Analgesic therapy
  13. MORPHINE [Concomitant]
     Active Substance: MORPHINE
     Dosage: MODESTLY INCREASED
  14. MORPHINE [Concomitant]
     Active Substance: MORPHINE
     Dosage: INCREASED
  15. MORPHINE [Concomitant]
     Active Substance: MORPHINE
     Dosage: STABILIZED IN THE 200 MG RANGE
  16. TRAZODONE [Concomitant]
     Active Substance: TRAZODONE HYDROCHLORIDE
     Indication: Insomnia
     Dosage: QHS
  17. TRAZODONE [Concomitant]
     Active Substance: TRAZODONE HYDROCHLORIDE
     Indication: Anxiety
     Dosage: PRN
  18. TRAZODONE [Concomitant]
     Active Substance: TRAZODONE HYDROCHLORIDE
     Dosage: QHS, TITRATED UP IN A STEPWISE MANNER
  19. LEXAPRO [Concomitant]
     Active Substance: ESCITALOPRAM OXALATE
     Indication: Sleep disorder
  20. LEXAPRO [Concomitant]
     Active Substance: ESCITALOPRAM OXALATE
     Indication: Anxiety

REACTIONS (1)
  - Delirium [Recovering/Resolving]
